FAERS Safety Report 8586242-2 (Version None)
Quarter: 2012Q3

REPORT INFORMATION
  Report Type: 
  Country: None (occurrence: None)
  Receive Date: 20120810
  Receipt Date: 20120807
  Transmission Date: 20120928
  Serious: Yes (Hospitalization)
  Sender: FDA-Public Use
  Company Number: US-009507513-1208USA003397

PATIENT

DRUGS (1)
  1. SAPHRIS [Suspect]
     Dosage: UNK
     Route: 048
     Dates: start: 20110101, end: 20110101

REACTIONS (1)
  - DYSTONIA [None]
